FAERS Safety Report 20471098 (Version 1)
Quarter: 2022Q1

REPORT INFORMATION
  Report Type: Spontaneous
  Country: US (occurrence: US)
  Receive Date: 20220214
  Receipt Date: 20220214
  Transmission Date: 20220424
  Serious: Yes (Hospitalization)
  Sender: FDA-Public Use
  Company Number: US-TEVA-2022-US-2007174

PATIENT
  Age: 56 Year
  Sex: Male

DRUGS (6)
  1. FILGRASTIM [Suspect]
     Active Substance: FILGRASTIM
     Indication: Mucosal ulceration
     Route: 065
     Dates: start: 2021
  2. LIDOCAINE [Suspect]
     Active Substance: LIDOCAINE
     Indication: Mucosal ulceration
     Dosage: ORAL RINSE
     Route: 048
     Dates: start: 2021
  3. NYSTATIN [Suspect]
     Active Substance: NYSTATIN
     Indication: Mucosal ulceration
     Route: 061
     Dates: start: 2021
  4. VORICONAZOLE [Suspect]
     Active Substance: VORICONAZOLE
     Indication: Antifungal prophylaxis
     Route: 065
     Dates: start: 202101
  5. DIPHENHYDRAMINE [Suspect]
     Active Substance: DIPHENHYDRAMINE
     Indication: Mucosal ulceration
     Dosage: ORAL RINSE
     Route: 048
     Dates: start: 2021
  6. NITROGLYCERIN [Suspect]
     Active Substance: NITROGLYCERIN
     Indication: Mucosal ulceration
     Route: 061
     Dates: start: 2021

REACTIONS (7)
  - Mucosal ulceration [Recovered/Resolved]
  - Drug ineffective [Unknown]
  - Pain [Recovered/Resolved]
  - Swelling face [Recovered/Resolved]
  - Dyschezia [Recovered/Resolved]
  - Neutropenia [Recovered/Resolved]
  - Lymphopenia [Recovered/Resolved]

NARRATIVE: CASE EVENT DATE: 20210101
